FAERS Safety Report 7377867-0 (Version None)
Quarter: 2011Q1

REPORT INFORMATION
  Report Type: 
  Country: None (occurrence: None)
  Receive Date: 20110328
  Receipt Date: 20110318
  Transmission Date: 20110831
  Serious: Yes (Other)
  Sender: FDA-Public Use
  Company Number: US-NOVOPROD-325203

PATIENT
  Sex: Female
  Weight: 87.982 kg

DRUGS (7)
  1. PEPCID [Concomitant]
     Indication: PROPHYLAXIS
  2. COUMADIN [Concomitant]
     Indication: PULMONARY EMBOLISM
  3. FLEXERIL [Concomitant]
     Indication: ARTHRALGIA
  4. MORPHINE [Concomitant]
     Indication: PAIN
  5. LEVEMIR [Suspect]
     Indication: TYPE 2 DIABETES MELLITUS
     Dosage: 35 U, UNK
     Route: 058
  6. HUMALOG [Concomitant]
     Indication: TYPE 2 DIABETES MELLITUS
     Dosage: UNK
     Route: 058
     Dates: end: 20110101
  7. SYNTHROID [Concomitant]
     Indication: HYPOTHYROIDISM

REACTIONS (1)
  - CATARACT [None]
